FAERS Safety Report 9315235 (Version 1)
Quarter: 2013Q2

REPORT INFORMATION
  Report Type: Spontaneous
  Country: US (occurrence: US)
  Receive Date: 20130529
  Receipt Date: 20130529
  Transmission Date: 20140414
  Serious: Yes (Hospitalization, Other)
  Sender: FDA-Public Use
  Company Number: US200908006297

PATIENT
  Age: 69 Year
  Sex: Male
  Weight: 117.91 kg

DRUGS (20)
  1. BYETTA PEN DISPOSABLE [Suspect]
     Indication: TYPE 2 DIABETES MELLITUS
     Dates: start: 20080826, end: 20080827
  2. EXENATIDE 5MCG PEN, DISPOSABLE DEVICE [Concomitant]
  3. LOVASTATIN [Concomitant]
     Indication: BLOOD CHOLESTEROL INCREASED
     Dates: start: 2000
  4. PEPCID [Concomitant]
     Indication: DYSPEPSIA
  5. GLIPIZIDE [Concomitant]
     Dates: end: 20080828
  6. METFORMIN [Concomitant]
     Dates: end: 20080828
  7. ACTOS [Concomitant]
  8. GEMFIBROZIL [Concomitant]
     Dates: end: 20080828
  9. LABETALOL [Concomitant]
     Dates: start: 20080618, end: 20080828
  10. LABETALOL [Concomitant]
     Dates: start: 20080828
  11. LISINOPRIL [Concomitant]
     Dates: start: 20080618
  12. PLAVIX [Concomitant]
  13. CITALOPRAM [Concomitant]
  14. ALPRAZOLAM [Concomitant]
  15. FISH OIL [Concomitant]
  16. INSULIN [Concomitant]
  17. SODIUM BICARBONATE [Concomitant]
     Indication: METABOLIC ACIDOSIS
     Dates: start: 20080828
  18. KAYEXALATE [Concomitant]
     Indication: BLOOD POTASSIUM INCREASED
     Dates: start: 20080828
  19. CALCIUM GLUCONATE [Concomitant]
     Indication: BLOOD POTASSIUM INCREASED
     Dates: start: 200808
  20. FAMOTIDINE [Concomitant]

REACTIONS (9)
  - Renal failure acute [Recovering/Resolving]
  - Renal failure chronic [Unknown]
  - Pancreatitis [Unknown]
  - Weight decreased [Unknown]
  - Polyuria [Recovered/Resolved]
  - Abdominal pain [Recovered/Resolved]
  - Diarrhoea [Unknown]
  - Lipase increased [Unknown]
  - Nephrolithiasis [Unknown]
